FAERS Safety Report 4322004-X (Version None)
Quarter: 2004Q1

REPORT INFORMATION
  Report Type: 
  Country: None (occurrence: None)
  Receive Date: 20040323
  Receipt Date: 20040205
  Transmission Date: 20041129
  Serious: Yes (Other)
  Sender: FDA-Public Use
  Company Number: PHNU2004DE00799

PATIENT
  Age: 55 Year
  Sex: Female

DRUGS (5)
  1. CLOZARIL [Suspect]
     Indication: SCHIZOPHRENIA
     Dosage: 25MG EVERY 2 DAYS
     Route: 048
     Dates: end: 20031201
  2. CLOZARIL [Suspect]
     Dosage: 50MG/DAY
     Route: 048
     Dates: start: 20031201
  3. BRONCHORETARD [Concomitant]
     Dosage: UNKNOWN
     Route: 065
  4. ASPIRIN [Suspect]
     Dosage: UNKNOWN
     Route: 048
  5. VALPROIC ACID [Concomitant]
     Dosage: UNKNOWN
     Route: 048

REACTIONS (3)
  - ANAEMIA [None]
  - GASTRIC ULCER HAEMORRHAGE [None]
  - HAEMOGLOBIN DECREASED [None]
